FAERS Safety Report 7185887-4 (Version None)
Quarter: 2010Q4

REPORT INFORMATION
  Report Type: 
  Country: None (occurrence: None)
  Receive Date: 20101222
  Receipt Date: 20100611
  Transmission Date: 20110411
  Serious: No
  Sender: FDA-Public Use
  Company Number: US-AMGEN-TCS417942

PATIENT

DRUGS (7)
  1. ENBREL [Suspect]
     Indication: PSORIASIS
     Dosage: 25 MG, 2 TIMES/WK
     Route: 058
     Dates: start: 20030206, end: 20100608
  2. ROPINIROLE HYDROCHLORIDE [Concomitant]
     Dosage: UNK UNK, UNK
     Dates: start: 20010626, end: 20060101
  3. BUPROPION [Concomitant]
     Dosage: UNK UNK, UNK
     Dates: start: 20080624
  4. BENAZEPRIL [Concomitant]
     Dosage: UNK UNK, UNK
     Dates: start: 20080624
  5. ALENDRONATE SODIUM [Concomitant]
     Dosage: UNK UNK, UNK
     Dates: start: 20080624
  6. OXYBUTYNIN [Concomitant]
     Dosage: UNK UNK, UNK
     Dates: start: 20080730
  7. IBUPROFEN [Concomitant]
     Dosage: UNK UNK, UNK
     Dates: start: 19950101

REACTIONS (1)
  - LATENT TUBERCULOSIS [None]
